FAERS Safety Report 9922689 (Version 2)
Quarter: 2014Q1

REPORT INFORMATION
  Report Type: Spontaneous
  Country: US (occurrence: US)
  Receive Date: 20140225
  Receipt Date: 20140225
  Transmission Date: 20141002
  Serious: No
  Sender: FDA-Public Use
  Company Number: US-MYLANLABS-2013S1005518

PATIENT
  Age: 56 Year
  Sex: Female
  Weight: 70.31 kg

DRUGS (8)
  1. METOPROLOL TARTRATE TABLETS, USP [Suspect]
     Indication: VENTRICULAR EXTRASYSTOLES
     Route: 048
     Dates: start: 20130301
  2. METOPROLOL TARTRATE TABLETS, USP [Suspect]
     Indication: OFF LABEL USE
     Route: 048
     Dates: start: 20130301
  3. METOPROLOL SUCCINATE EXTENDED-RELEASE TABLETS USP [Suspect]
     Indication: VENTRICULAR EXTRASYSTOLES
     Route: 048
     Dates: start: 201212, end: 20130228
  4. METOPROLOL SUCCINATE EXTENDED-RELEASE TABLETS USP [Suspect]
     Indication: OFF LABEL USE
     Route: 048
     Dates: start: 201212, end: 20130228
  5. LEVOTHYROXINE [Concomitant]
     Indication: HYPOTHYROIDISM
  6. HYOSCYAMINE [Concomitant]
     Indication: IRRITABLE BOWEL SYNDROME
     Dosage: ER
  7. VITAMIN D [Concomitant]
  8. RELPAX [Concomitant]
     Indication: MIGRAINE

REACTIONS (3)
  - Dizziness [Not Recovered/Not Resolved]
  - Dyspnoea [Not Recovered/Not Resolved]
  - Chest discomfort [Not Recovered/Not Resolved]
